FAERS Safety Report 10078160 (Version 1)
Quarter: 2014Q2

REPORT INFORMATION
  Report Type: Spontaneous
  Country: US (occurrence: US)
  Receive Date: 20140415
  Receipt Date: 20140415
  Transmission Date: 20141212
  Serious: No
  Sender: FDA-Public Use
  Company Number: US-BIOGENIDEC-2014BI022732

PATIENT
  Age: 46 Year
  Sex: Female

DRUGS (1)
  1. AVONEX [Suspect]
     Indication: MULTIPLE SCLEROSIS
     Route: 030
     Dates: start: 20101217

REACTIONS (5)
  - Tremor [Recovered/Resolved]
  - Dysarthria [Unknown]
  - General symptom [Unknown]
  - Multiple sclerosis relapse [Unknown]
  - Influenza like illness [Recovered/Resolved]
